FAERS Safety Report 23091078 (Version 1)
Quarter: 2023Q4

REPORT INFORMATION
  Report Type: Spontaneous
  Country: US (occurrence: US)
  Receive Date: 20231020
  Receipt Date: 20231020
  Transmission Date: 20240110
  Serious: No
  Sender: FDA-Public Use
  Company Number: US-Calliditas-2023CAL01351

PATIENT
  Age: 77 Year
  Sex: Male

DRUGS (1)
  1. TARPEYO [Suspect]
     Active Substance: BUDESONIDE
     Indication: IgA nephropathy
     Dosage: 16 MG (4 MG CAPSULES) ONCE DAILY
     Route: 048
     Dates: start: 20221202

REACTIONS (5)
  - Taste disorder [Unknown]
  - Hypersensitivity [Unknown]
  - Productive cough [Unknown]
  - Brain fog [Unknown]
  - Dry mouth [Unknown]
